FAERS Safety Report 8062181-0 (Version None)
Quarter: 2012Q1

REPORT INFORMATION
  Report Type: 
  Country: None (occurrence: None)
  Receive Date: 20120123
  Receipt Date: 20120116
  Transmission Date: 20120608
  Serious: Yes (Death)
  Sender: FDA-Public Use
  Company Number: US-ROXANE LABORATORIES, INC.-2012-EU-00362GD

PATIENT
  Age: 19 Year
  Sex: Male

DRUGS (2)
  1. MORPHINE [Suspect]
     Route: 065
  2. CODEINE SULFATE [Suspect]
     Route: 065

REACTIONS (1)
  - DRUG ABUSE [None]
